FAERS Safety Report 23337049 (Version 2)
Quarter: 2024Q1

REPORT INFORMATION
  Report Type: Spontaneous
  Country: RO (occurrence: RO)
  Receive Date: 20231226
  Receipt Date: 20240102
  Transmission Date: 20240410
  Serious: Yes (Life-Threatening, Hospitalization, Other)
  Sender: FDA-Public Use
  Company Number: RO-ALKEM LABORATORIES LIMITED-RO-ALKEM-2023-15949

PATIENT
  Age: 33 Year
  Sex: Male

DRUGS (2)
  1. QUETIAPINE FUMARATE [Suspect]
     Active Substance: QUETIAPINE FUMARATE
     Indication: Schizoaffective disorder
     Dosage: 12 GRAM (INGESTION)
     Route: 048
  2. VENLAFAXINE [Suspect]
     Active Substance: VENLAFAXINE HYDROCHLORIDE
     Indication: Schizoaffective disorder
     Dosage: 4.5 GRAM (INGESTION)
     Route: 048

REACTIONS (11)
  - Circulatory collapse [Recovering/Resolving]
  - Coma scale abnormal [Recovering/Resolving]
  - Toxicity to various agents [Recovering/Resolving]
  - Ventricular extrasystoles [Recovering/Resolving]
  - Nodal arrhythmia [Recovering/Resolving]
  - Generalised tonic-clonic seizure [Recovering/Resolving]
  - Electrocardiogram QT prolonged [Recovering/Resolving]
  - Suicide attempt [Recovering/Resolving]
  - Coma [Recovering/Resolving]
  - Hypotension [Recovering/Resolving]
  - Overdose [Unknown]
